FAERS Safety Report 23982973 (Version 3)
Quarter: 2024Q3

REPORT INFORMATION
  Report Type: Spontaneous
  Country: US (occurrence: US)
  Receive Date: 20240617
  Receipt Date: 20240802
  Transmission Date: 20241017
  Serious: No
  Sender: PFIZER
  Company Number: US-SEATTLE GENETICS-2024SGN02317

PATIENT
  Age: 50 Year

DRUGS (1)
  1. TIVDAK [Suspect]
     Active Substance: TISOTUMAB VEDOTIN-TFTV
     Dosage: UNK

REACTIONS (2)
  - Illness [Unknown]
  - Vomiting [Not Recovered/Not Resolved]
